FAERS Safety Report 10706801 (Version 2)
Quarter: 2015Q1

REPORT INFORMATION
  Report Type: Spontaneous
  Country: US (occurrence: None)
  Receive Date: 20150109
  Receipt Date: 20150122
  Transmission Date: 20150721
  Serious: Yes (Death, Hospitalization)
  Sender: FDA-Public Use
  Company Number: 20140835

PATIENT
  Age: 63 Year
  Sex: Female
  Weight: 61.9 kg

DRUGS (29)
  1. CARVEDILOL. [Concomitant]
     Active Substance: CARVEDILOL
  2. VENOFER [Suspect]
     Active Substance: IRON SUCROSE
     Indication: CHRONIC KIDNEY DISEASE
     Dosage: ALGORITHM USED TO DET. DOSE
     Route: 042
     Dates: start: 201112, end: 201412
  3. ZOLOFT [Concomitant]
     Active Substance: SERTRALINE HYDROCHLORIDE
  4. MELATONIN [Concomitant]
     Active Substance: MELATONIN
  5. VENOFER [Suspect]
     Active Substance: IRON SUCROSE
     Indication: IRON DEFICIENCY ANAEMIA
     Dosage: ALGORITHM USED TO DET. DOSE
     Route: 042
     Dates: start: 201112, end: 201412
  6. NATURALYTE BICARBONATE [Suspect]
     Active Substance: SODIUM BICARBONATE
  7. MIRALAX (POLYETHYLENE GLYCOL) [Concomitant]
  8. PHOSLO [Concomitant]
     Active Substance: CALCIUM ACETATE
  9. CINACALCET [Concomitant]
     Active Substance: CINACALCET
  10. NEPHRO CAPS (MULTIVITAMIN) [Concomitant]
  11. OXYCODONE [Concomitant]
     Active Substance: OXYCODONE
  12. BENADRYL (DIPHENHYDRAMINE HCL) [Concomitant]
  13. LIPITOR [Concomitant]
     Active Substance: ATORVASTATIN CALCIUM
  14. PERCOCET (OXYCODONE/ACETAMINOPHEN) [Concomitant]
  15. PLAVIX [Concomitant]
     Active Substance: CLOPIDOGREL BISULFATE
  16. ZEMPLAR [Concomitant]
     Active Substance: PARICALCITOL
  17. FMC BLOODLINES [Suspect]
     Active Substance: DEVICE
  18. FRESENIUS DIALYZER [Suspect]
     Active Substance: DEVICE
  19. GRANUFLO [Suspect]
     Active Substance: ACETIC ACID\SODIUM ACETATE
  20. PRILOSEC (OMEPRAZOLE) [Concomitant]
     Active Substance: OMEPRAZOLE MAGNESIUM
  21. SENSIPAR (CINACALCET) [Concomitant]
  22. ACETAMINOPHEN. [Concomitant]
     Active Substance: ACETAMINOPHEN
  23. LABETALOL [Concomitant]
     Active Substance: LABETALOL\LABETALOL HYDROCHLORIDE
  24. NITOR-DUR  PATCH (NITROGLYCERIN) [Concomitant]
  25. CYCLOBENZAPRINE [Concomitant]
     Active Substance: CYCLOBENZAPRINE
  26. FRESENIUS 2008T HEMODIALYSIS SYSTEM [Suspect]
     Active Substance: DEVICE
  27. COUMADIN (WARFARIN) [Concomitant]
  28. PREDNISONE ACETATE [Concomitant]
     Active Substance: PREDNISONE ACETATE
  29. GENTAMICIN OINTMENT [Concomitant]

REACTIONS (13)
  - Sepsis [None]
  - Gastrointestinal haemorrhage [None]
  - Myocardial infarction [None]
  - Cardiac arrest [None]
  - Bradycardia [None]
  - Graft infection [None]
  - Coronary artery disease [None]
  - Ischaemic stroke [None]
  - Poor peripheral circulation [None]
  - Peripheral coldness [None]
  - Aortic aneurysm [None]
  - Post procedural haemorrhage [None]
  - Proteus infection [None]

NARRATIVE: CASE EVENT DATE: 201408
